FAERS Safety Report 6503067-X (Version None)
Quarter: 2009Q4

REPORT INFORMATION
  Report Type: 
  Country: None (occurrence: None)
  Receive Date: 20091201
  Receipt Date: 20090316
  Transmission Date: 20100525
  Serious: Yes (Hospitalization)
  Sender: FDA-Public Use
  Company Number: 182818USA

PATIENT
  Age: 56 Year
  Sex: Male
  Weight: 76.6579 kg

DRUGS (9)
  1. CARBOPLATIN [Suspect]
     Indication: LUNG NEOPLASM MALIGNANT
  2. DOCETAXEL [Concomitant]
  3. DIAZEPAM [Concomitant]
  4. TEMAZEPAM [Concomitant]
  5. PROCHLORPERAZINE EDISYLATE [Concomitant]
  6. ONDANSETRON [Concomitant]
  7. ACETYLSALICYLIC ACID [Concomitant]
  8. PHENYTOIN [Concomitant]
  9. NARINE /01202601/ [Concomitant]

REACTIONS (5)
  - DEPRESSED LEVEL OF CONSCIOUSNESS [None]
  - DYSPNOEA [None]
  - ERYTHEMA [None]
  - OXYGEN SATURATION DECREASED [None]
  - WHEEZING [None]
